FAERS Safety Report 24073575 (Version 1)
Quarter: 2024Q3

REPORT INFORMATION
  Report Type: Spontaneous
  Country: CN (occurrence: CN)
  Receive Date: 20240710
  Receipt Date: 20240710
  Transmission Date: 20241017
  Serious: Yes (Death, Hospitalization, Other)
  Sender: DR REDDYS
  Company Number: CN-RDY-LIT/CHN/24/0010151

PATIENT
  Age: 77 Year
  Sex: Male

DRUGS (10)
  1. CLOPIDOGREL [Suspect]
     Active Substance: CLOPIDOGREL BISULFATE
     Indication: Coronary artery dilatation
     Dates: start: 202202
  2. CEFTRIAXONE [Suspect]
     Active Substance: CEFTRIAXONE\CEFTRIAXONE SODIUM
     Indication: Product used for unknown indication
     Dosage: EVERY OTHER DAY
     Dates: start: 202202
  3. PREDNISONE [Suspect]
     Active Substance: PREDNISONE
     Indication: Antiplatelet therapy
  4. PREDNISONE [Suspect]
     Active Substance: PREDNISONE
     Indication: Coronary artery dilatation
  5. PREDNISONE [Suspect]
     Active Substance: PREDNISONE
     Dates: start: 202201
  6. PREDNISONE [Suspect]
     Active Substance: PREDNISONE
     Dates: start: 202202
  7. ASPIRIN [Suspect]
     Active Substance: ASPIRIN
     Indication: Coronary artery dilatation
  8. ASPIRIN [Suspect]
     Active Substance: ASPIRIN
     Dates: start: 202202
  9. ATORVASTATIN [Suspect]
     Active Substance: ATORVASTATIN
     Indication: Coronary artery dilatation
     Dates: start: 202202
  10. MYCOPHENOLATE MOFETIL [Concomitant]
     Active Substance: MYCOPHENOLATE MOFETIL
     Indication: Antiplatelet therapy

REACTIONS (4)
  - Acute myocardial infarction [Fatal]
  - Atrial fibrillation [Fatal]
  - Ventricular tachycardia [Fatal]
  - Drug ineffective [Fatal]
